FAERS Safety Report 9291355 (Version 1)
Quarter: 2013Q2

REPORT INFORMATION
  Report Type: Spontaneous
  Country: US (occurrence: US)
  Receive Date: 20130515
  Receipt Date: 20130515
  Transmission Date: 20140414
  Serious: No
  Sender: FDA-Public Use
  Company Number: US-BAUSCH-BL-2013-000666

PATIENT
  Age: 71 Year
  Sex: Female

DRUGS (1)
  1. BROMDAY 0.09% [Suspect]
     Indication: PRODUCT USED FOR UNKNOWN INDICATION
     Route: 047

REACTIONS (2)
  - Eye swelling [Unknown]
  - Ocular hyperaemia [Unknown]
